FAERS Safety Report 9697037 (Version 2)
Quarter: 2013Q4

REPORT INFORMATION
  Report Type: Spontaneous
  Country: DE (occurrence: DE)
  Receive Date: 20131120
  Receipt Date: 20131203
  Transmission Date: 20140711
  Serious: Yes (Hospitalization)
  Sender: FDA-Public Use
  Company Number: DE-PFIZER INC-2013329967

PATIENT
  Age: 73 Year
  Sex: Male

DRUGS (6)
  1. AMIODARONE HCL [Suspect]
     Indication: ARRHYTHMIA
     Dosage: 200 MG, DAILY
     Route: 048
     Dates: start: 2006, end: 201311
  2. METOPROLOL SUCCINATE [Interacting]
     Indication: HYPERTENSION
     Dosage: 47.5 MG, 2X/DAY
     Route: 048
     Dates: start: 2006, end: 201311
  3. CANDESARTAN [Concomitant]
     Dosage: UNK
     Dates: start: 2007
  4. AMLODIPINE [Concomitant]
     Dosage: UNK
     Dates: start: 2007
  5. MARCUMAR [Concomitant]
     Indication: HEART VALVE OPERATION
     Dosage: UNK
     Dates: start: 2007
  6. PANTOPRAZOLE [Concomitant]
     Dosage: UNK
     Dates: start: 2007

REACTIONS (4)
  - Drug interaction [Unknown]
  - Circulatory collapse [Recovered/Resolved]
  - Bradycardia [Recovering/Resolving]
  - Conduction disorder [Recovering/Resolving]
